FAERS Safety Report 7077675 (Version 2)
Quarter: 2014Q3

REPORT INFORMATION
  Report Type: Spontaneous
  Country: US (occurrence: None)
  Receive Date: 20090803
  Receipt Date: 20140806
  Transmission Date: 20150326
  Serious: Yes (Hospitalization, Other)
  Sender: FDA-Public Use
  Company Number: 2009S1005935

PATIENT
  Age: 71 Year
  Sex: Female

DRUGS (22)
  1. PHOSPHO-SODA [Suspect]
     Active Substance: SODIUM PHOSPHATE, DIBASIC\SODIUM PHOSPHATE, MONOBASIC
     Indication: LAPAROTOMY
     Dosage: PO
     Route: 048
     Dates: start: 20081214, end: 20081214
  2. DARVOCET (PARACETAMOOL, DEXTROPROPOXYPHENE HYDROCHLORIDE) [Concomitant]
  3. ALLEGRA (FEXOFENADINE HYDROCHLORIDE) [Concomitant]
  4. ASPIRIN (ACETYLSALICYLIC ACID) [Concomitant]
     Active Substance: ASPIRIN
  5. GLUCOPHAGE (METFORMIN HYDROCHLORIDE) [Concomitant]
  6. PROCHLORPERAZINE (PROCHLORPERAZINE) [Concomitant]
     Active Substance: PROCHLORPERAZINE
  7. ZOCOR [Concomitant]
     Active Substance: SIMVASTATIN
  8. ACTONEL (RISEDRONATE SODIUM) [Concomitant]
  9. CELEXA [Concomitant]
     Active Substance: CITALOPRAM HYDROBROMIDE
  10. CARDURA [Concomitant]
     Active Substance: DOXAZOSIN MESYLATE
  11. PRILOSEC (OMEPRAZOLE) [Concomitant]
     Active Substance: OMEPRAZOLE MAGNESIUM
  12. VITAMIN E [Concomitant]
     Active Substance: .ALPHA.-TOCOPHEROL
  13. COLACE [Concomitant]
     Active Substance: DOCUSATE SODIUM
  14. PAMELOR (NORTRIPTYLINE HYDROCHLORIDE) [Concomitant]
  15. PROVENTIL (SALBUTAMOL) [Concomitant]
  16. ATACAND [Concomitant]
     Active Substance: CANDESARTAN CILEXETIL
  17. CALAN (VERAPAMIL HYDROCHLORIDE) [Concomitant]
  18. SINEMET (LEVODOPA, CARBIDOPA) [Concomitant]
  19. BENADRYL [Concomitant]
     Active Substance: DIPHENHYDRAMINE HYDROCHLORIDE
  20. SINGULAIR (MONTELUKAST SODIUM) [Concomitant]
  21. SPIRIVA [Concomitant]
     Active Substance: TIOTROPIUM BROMIDE MONOHYDRATE
  22. IRON SUPPLEMENT (IRON) [Concomitant]

REACTIONS (23)
  - Kidney small [None]
  - Renal artery stenosis [None]
  - Procedural hypotension [None]
  - Post procedural complication [None]
  - Urinary tract infection [None]
  - Renal ischaemia [None]
  - Renal failure chronic [None]
  - Blood calcium decreased [None]
  - Iron deficiency anaemia [None]
  - Adhesion [None]
  - Atrial fibrillation [None]
  - Cardiac failure congestive [None]
  - Atrophic vulvovaginitis [None]
  - Acute phosphate nephropathy [None]
  - Vitamin D deficiency [None]
  - Nephrogenic anaemia [None]
  - Blood phosphorus increased [None]
  - Renal failure acute [None]
  - Hypovolaemia [None]
  - Acute prerenal failure [None]
  - Renal vessel disorder [None]
  - Intestinal obstruction [None]
  - Renal tubular necrosis [None]

NARRATIVE: CASE EVENT DATE: 20081215
